FAERS Safety Report 8247300-5 (Version None)
Quarter: 2012Q1

REPORT INFORMATION
  Report Type: 
  Country: None (occurrence: None)
  Receive Date: 20120330
  Receipt Date: 20120326
  Transmission Date: 20120608
  Serious: Yes (Hospitalization)
  Sender: FDA-Public Use
  Company Number: GB-ROCHE-764755

PATIENT
  Sex: Female
  Weight: 79 kg

DRUGS (3)
  1. ACTEMRA [Suspect]
     Indication: RHEUMATOID ARTHRITIS
     Route: 065
  2. MABTHERA [Suspect]
     Indication: RHEUMATOID ARTHRITIS
     Dates: start: 20100526
  3. METHOTREXATE [Concomitant]

REACTIONS (3)
  - ERYTHEMA [None]
  - FALL [None]
  - JOINT SWELLING [None]
